FAERS Safety Report 6846355-X (Version None)
Quarter: 2010Q3

REPORT INFORMATION
  Report Type: 
  Country: None (occurrence: None)
  Receive Date: 20100715
  Receipt Date: 20080513
  Transmission Date: 20110219
  Serious: No
  Sender: FDA-Public Use
  Company Number: US-PFIZER INC-2007077605

PATIENT
  Sex: Female
  Weight: 77.2 kg

DRUGS (4)
  1. CHANTIX [Suspect]
     Indication: SMOKING CESSATION THERAPY
     Dates: start: 20070922, end: 20070930
  2. ANTIPSYCHOTICS [Interacting]
     Indication: BIPOLAR DISORDER
  3. NEURONTIN [Concomitant]
  4. LITHIUM [Concomitant]

REACTIONS (8)
  - ARTHROPATHY [None]
  - ASTHENIA [None]
  - DECREASED APPETITE [None]
  - DIZZINESS [None]
  - DRUG INTERACTION [None]
  - FEELING ABNORMAL [None]
  - MALAISE [None]
  - NAUSEA [None]
